FAERS Safety Report 17102730 (Version 1)
Quarter: 2019Q4

REPORT INFORMATION
  Report Type: Spontaneous
  Country: US (occurrence: US)
  Receive Date: 20191203
  Receipt Date: 20191203
  Transmission Date: 20200122
  Serious: Yes (Other)
  Sender: FDA-Public Use
  Company Number: US-ROCHE-2484015

PATIENT
  Sex: Male

DRUGS (25)
  1. ASPIRIN [ACETYLSALICYLIC ACID] [Concomitant]
     Active Substance: ASPIRIN
  2. RANITIDINE. [Concomitant]
     Active Substance: RANITIDINE
  3. BRIVIACT [Concomitant]
     Active Substance: BRIVARACETAM
  4. BUDESONIDE. [Concomitant]
     Active Substance: BUDESONIDE
  5. DIVALPROEX [Concomitant]
     Active Substance: DIVALPROEX SODIUM
  6. BENZONATATE. [Concomitant]
     Active Substance: BENZONATATE
  7. ELIQUIS [Concomitant]
     Active Substance: APIXABAN
  8. SOTALOL HCL [Concomitant]
     Active Substance: SOTALOL
  9. BREO ELLIPTA [Concomitant]
     Active Substance: FLUTICASONE FUROATE\VILANTEROL TRIFENATATE
  10. FUROSEMIDE. [Concomitant]
     Active Substance: FUROSEMIDE
  11. MOMETASONE [Concomitant]
     Active Substance: MOMETASONE
  12. MONTELUKAST [Concomitant]
     Active Substance: MONTELUKAST SODIUM
  13. PREDNISONE. [Concomitant]
     Active Substance: PREDNISONE
  14. UROCIT-K [Concomitant]
     Active Substance: POTASSIUM CITRATE
  15. POTASSIUM CITRATE. [Concomitant]
     Active Substance: POTASSIUM CITRATE
  16. ASPIRIN. [Concomitant]
     Active Substance: ASPIRIN
  17. ELIQUIS [Concomitant]
     Active Substance: APIXABAN
  18. TESTOSTERONE. [Concomitant]
     Active Substance: TESTOSTERONE
  19. CARBAMAZEPINE. [Concomitant]
     Active Substance: CARBAMAZEPINE
  20. HYOSCYAMINE. [Concomitant]
     Active Substance: HYOSCYAMINE
  21. XOLAIR [Suspect]
     Active Substance: OMALIZUMAB
     Indication: STEVENS-JOHNSON SYNDROME
     Dosage: ONGOING
     Route: 058
     Dates: start: 20160120
  22. ATORVASTATIN [Concomitant]
     Active Substance: ATORVASTATIN
  23. IBUPROFEN. [Concomitant]
     Active Substance: IBUPROFEN
  24. ZOCOR [Concomitant]
     Active Substance: SIMVASTATIN
  25. VIMPAT [Concomitant]
     Active Substance: LACOSAMIDE

REACTIONS (4)
  - Hepatotoxicity [Unknown]
  - Off label use [Unknown]
  - Intentional product use issue [Unknown]
  - Cerebrovascular accident [Unknown]
